FAERS Safety Report 9015782 (Version 4)
Quarter: 2013Q2

REPORT INFORMATION
  Report Type: Spontaneous
  Country: FR (occurrence: None)
  Receive Date: 20130102
  Receipt Date: 20130403
  Transmission Date: 20140414
  Serious: Yes (Hospitalization)
  Sender: FDA-Public Use
  Company Number: ACO_33501_2012

PATIENT
  Age: 59 Year
  Sex: Female

DRUGS (10)
  1. FAMPRIDINE [Suspect]
     Indication: MULTIPLE SCLEROSIS
     Route: 048
     Dates: start: 20120709
  2. PROZAC (FLUOXETINE HYDROCHLORIDE) [Concomitant]
  3. LEVOCETIRIZINE DIHYDROCHLORIDE [Concomitant]
  4. TOPALGIC (TRAMADOL HYDROCHLORIDE) [Concomitant]
  5. DAFALGAN (PARACETAMOL) [Concomitant]
  6. LIORESAL (BACLOFEN) [Concomitant]
  7. ACUPAN (NEFOPAM HYDROCHLORIDE) [Concomitant]
  8. DOLIPRANE (PARACETAMOL) [Concomitant]
  9. CONTRAMAL (TRAMADOL HYDROCHLORIDE) [Concomitant]
  10. CETRIZINE (CETIRIZINE HYDROCHLORIDE) [Concomitant]

REACTIONS (3)
  - Sciatica [None]
  - Vertebral foraminal stenosis [None]
  - Condition aggravated [None]
